FAERS Safety Report 6174535-8 (Version None)
Quarter: 2009Q2

REPORT INFORMATION
  Report Type: 
  Country: None (occurrence: None)
  Receive Date: 20090430
  Receipt Date: 20080715
  Transmission Date: 20091009
  Serious: No
  Sender: FDA-Public Use
  Company Number: US-ASTRAZENECA-2008UW14199

PATIENT
  Sex: Female

DRUGS (4)
  1. NEXIUM [Suspect]
     Route: 048
  2. PRILOSEC OTC [Suspect]
     Indication: GASTROOESOPHAGEAL REFLUX DISEASE
     Dosage: 1 TABLET, 1/DAY FOR FOUR DAYS
     Route: 048
     Dates: start: 20080710, end: 20080714
  3. TUMS [Concomitant]
  4. GAS X [Concomitant]

REACTIONS (1)
  - CHEST DISCOMFORT [None]
